FAERS Safety Report 4359432-2 (Version None)
Quarter: 2004Q2

REPORT INFORMATION
  Report Type: 
  Country: None (occurrence: None)
  Receive Date: 20040512
  Receipt Date: 20040423
  Transmission Date: 20050107
  Serious: Yes (Other)
  Sender: FDA-Public Use
  Company Number: USA040361780

PATIENT
  Age: 75 Year
  Sex: Female
  Weight: 61 kg

DRUGS (3)
  1. HUMULIN 70/30 [Suspect]
     Indication: DIABETES MELLITUS
     Dosage: 22 U DAY
     Dates: start: 20011201
  2. GLUCOPHAGE [Concomitant]
  3. GLYBURIDE [Concomitant]

REACTIONS (3)
  - ARTHRITIS [None]
  - FLUID RETENTION [None]
  - WEIGHT INCREASED [None]
